FAERS Safety Report 21887491 (Version 9)
Quarter: 2024Q1

REPORT INFORMATION
  Report Type: Report from Study
  Country: US (occurrence: US)
  Receive Date: 20230120
  Receipt Date: 20240228
  Transmission Date: 20240409
  Serious: Yes (Death, Other)
  Sender: FDA-Public Use
  Company Number: US-ACADIA PHARMACEUTICALS INC.-ACA-2022-PIM-004542

PATIENT
  Age: 88 Year
  Sex: Male

DRUGS (3)
  1. NUPLAZID [Suspect]
     Active Substance: PIMAVANSERIN TARTRATE
     Indication: Parkinson^s disease psychosis
     Dosage: 34 MILLIGRAM, QD
     Route: 048
     Dates: start: 202211
  2. LEXAPRO [Suspect]
     Active Substance: ESCITALOPRAM OXALATE
     Route: 065
  3. CARBIDOPA\LEVODOPA [Suspect]
     Active Substance: CARBIDOPA\LEVODOPA
     Route: 065

REACTIONS (12)
  - Death [Fatal]
  - Mental impairment [Unknown]
  - Nightmare [Unknown]
  - Abnormal dreams [Not Recovered/Not Resolved]
  - Abnormal dreams [Unknown]
  - Abnormal dreams [Unknown]
  - Abnormal behaviour [Unknown]
  - Nightmare [Unknown]
  - Crying [Unknown]
  - Anxiety [Unknown]
  - Abnormal dreams [Unknown]
  - Hallucination, visual [Not Recovered/Not Resolved]

NARRATIVE: CASE EVENT DATE: 20240123
